FAERS Safety Report 18818500 (Version 2)
Quarter: 2021Q1

REPORT INFORMATION
  Report Type: Report from Study
  Country: US (occurrence: US)
  Receive Date: 20210202
  Receipt Date: 20210209
  Transmission Date: 20210419
  Serious: Yes (Other)
  Sender: FDA-Public Use
  Company Number: US-UCBSA-2020050891

PATIENT
  Age: 56 Year
  Sex: Female

DRUGS (2)
  1. CERTOLIZUMAB PEGOL [Suspect]
     Active Substance: CERTOLIZUMAB PEGOL
     Indication: PSORIATIC ARTHROPATHY
     Dosage: 400 MILLIGRAM, EV 2 WEEKS(QOW)
     Dates: start: 20201117
  2. CERTOLIZUMAB PEGOL [Suspect]
     Active Substance: CERTOLIZUMAB PEGOL
     Dosage: 400 MILLIGRAM, EV 4 WEEKS
     Dates: start: 2020, end: 20201217

REACTIONS (2)
  - Rash [Recovered/Resolved]
  - Product administered at inappropriate site [Unknown]

NARRATIVE: CASE EVENT DATE: 20201127
